FAERS Safety Report 12976063 (Version 2)
Quarter: 2016Q4

REPORT INFORMATION
  Report Type: Report from Study
  Country: US (occurrence: US)
  Receive Date: 20161126
  Receipt Date: 20161207
  Transmission Date: 20170207
  Serious: Yes (Other)
  Sender: FDA-Public Use
  Company Number: PHEH2016US030916

PATIENT
  Sex: Female

DRUGS (2)
  1. ZOMETA [Suspect]
     Active Substance: ZOLEDRONIC ACID
     Indication: BREAST CANCER METASTATIC
     Dosage: UNK
     Route: 042
     Dates: start: 20140901, end: 20141130
  2. AFINITOR [Suspect]
     Active Substance: EVEROLIMUS
     Indication: BREAST CANCER METASTATIC
     Dosage: UNK
     Route: 048
     Dates: start: 20140601

REACTIONS (7)
  - Malignant neoplasm progression [Unknown]
  - Vein disorder [Recovered/Resolved]
  - Oral pain [Recovering/Resolving]
  - Fatigue [Recovering/Resolving]
  - Insomnia [Recovering/Resolving]
  - Breast cancer metastatic [Unknown]
  - Diarrhoea [Unknown]

NARRATIVE: CASE EVENT DATE: 20140801
